FAERS Safety Report 4284131-5 (Version None)
Quarter: 2004Q1

REPORT INFORMATION
  Report Type: 
  Country: None (occurrence: None)
  Receive Date: 20040203
  Receipt Date: 20031223
  Transmission Date: 20041129
  Serious: Yes (Other)
  Sender: FDA-Public Use
  Company Number: CA-GLAXOSMITHKLINE-A0490803A

PATIENT
  Age: 35 Year
  Sex: Female
  Weight: 65 kg

DRUGS (2)
  1. COMBIVIR [Suspect]
     Indication: ILL-DEFINED DISORDER
     Dosage: 20TAB SINGLE DOSE
     Route: 048
  2. NEVIRAPINE [Concomitant]

REACTIONS (3)
  - DIZZINESS [None]
  - OVERDOSE [None]
  - SUICIDE ATTEMPT [None]
